FAERS Safety Report 5554868-6 (Version None)
Quarter: 2007Q4

REPORT INFORMATION
  Report Type: 
  Country: None (occurrence: None)
  Receive Date: 20071213
  Receipt Date: 20071130
  Transmission Date: 20080405
  Serious: Yes (Hospitalization)
  Sender: FDA-Public Use
  Company Number: GB-AMGEN-US255707

PATIENT
  Sex: Female
  Weight: 86.4 kg

DRUGS (6)
  1. ENBREL [Suspect]
     Indication: SYSTEMIC LUPUS ERYTHEMATOSUS
     Route: 058
     Dates: start: 20070301, end: 20071105
  2. ENBREL [Suspect]
     Indication: PSORIASIS
  3. SIMVASTATIN [Concomitant]
     Indication: BLOOD CHOLESTEROL INCREASED
     Dosage: 40 MG FREQUENCY UNKNOWN
     Route: 048
     Dates: start: 20050101
  4. LISINOPRIL [Concomitant]
     Indication: HYPERTENSION
     Dosage: 5 MG FREQUENCY UNKNOWN
     Route: 048
     Dates: start: 20050101
  5. ASPIRIN [Concomitant]
     Indication: DEEP VEIN THROMBOSIS
     Dosage: 75 MG FREQUENCY UNKNOWN
     Route: 048
     Dates: start: 20010101
  6. DIHYDROCODEINE [Concomitant]
     Indication: PAIN
     Dosage: 50/500 FREQUENCY UNKNOWN
     Route: 048
     Dates: start: 20010101

REACTIONS (3)
  - DRUG INEFFECTIVE [None]
  - HENOCH-SCHONLEIN PURPURA [None]
  - VASCULITIS NECROTISING [None]
